FAERS Safety Report 7582320-5 (Version None)
Quarter: 2011Q2

REPORT INFORMATION
  Report Type: 
  Country: None (occurrence: None)
  Receive Date: 20110527
  Receipt Date: 20110124
  Transmission Date: 20111010
  Serious: Yes (Hospitalization, Other)
  Sender: FDA-Public Use
  Company Number: US200906004344

PATIENT
  Age: 45 Year
  Sex: Female
  Weight: 73.5 kg

DRUGS (13)
  1. ASPIRIN [Concomitant]
  2. BYETTA [Suspect]
     Indication: TYPE 2 DIABETES MELLITUS
     Dosage: 5 UG, 2/D,   10 UG, 2/D,    UNK, 2/D
     Dates: start: 20070824, end: 20090114
  3. BYETTA [Suspect]
     Indication: TYPE 2 DIABETES MELLITUS
     Dosage: 5 UG, 2/D,   10 UG, 2/D,    UNK, 2/D
     Dates: start: 20051110, end: 20051209
  4. BYETTA [Suspect]
     Indication: TYPE 2 DIABETES MELLITUS
     Dosage: 5 UG, 2/D,   10 UG, 2/D,    UNK, 2/D
     Dates: start: 20051209, end: 20060101
  5. ACETAMINOPHEN [Concomitant]
  6. EXENATIDE PEN, DISPOSABLE DEVICE (EXENATIDE PEN) PEN, DISPOSABLE [Concomitant]
  7. GAS X (SIMETICONE) [Concomitant]
  8. NASACORT [Concomitant]
  9. IBUPROFEN [Concomitant]
  10. ALBUTEROL [Concomitant]
  11. LISINOPRIL [Concomitant]
  12. VICODIN [Concomitant]
  13. NIACIN AND INOSITOL (INOSITOL, NICOTINIC ACID) [Concomitant]

REACTIONS (3)
  - RENAL INJURY [None]
  - ABDOMINAL PAIN [None]
  - PANCREATITIS ACUTE [None]
